FAERS Safety Report 9632869 (Version 1)
Quarter: 2013Q4

REPORT INFORMATION
  Report Type: Report from Study
  Country: BR (occurrence: BR)
  Receive Date: 20131018
  Receipt Date: 20131018
  Transmission Date: 20140711
  Serious: Yes (Hospitalization, Other)
  Sender: FDA-Public Use
  Company Number: PHHY2013BR114755

PATIENT
  Sex: Male
  Weight: 80 kg

DRUGS (7)
  1. EXELON [Suspect]
     Indication: DEMENTIA ALZHEIMER^S TYPE
     Dosage: 1 DF (TABLET), DAILY
     Route: 048
     Dates: start: 2013, end: 201307
  2. PLAGREL [Suspect]
     Indication: CEREBROVASCULAR ACCIDENT
     Dosage: 1 DF  (TABLET), DAILY
     Route: 048
     Dates: start: 2007
  3. GLUCOFORMIN [Suspect]
     Indication: DIABETES MELLITUS
     Dosage: 2 DF (TABLETS), DAILY
     Route: 048
     Dates: start: 2007
  4. DIAMICRON [Suspect]
     Indication: DIABETES MELLITUS
     Dosage: 2 DF (TABLETS), DAILY
     Route: 048
     Dates: start: 2007
  5. DEPURA [Suspect]
     Indication: BONE DISORDER
     Dosage: 5 GTT (DROPS), UNK
     Route: 048
     Dates: start: 2007
  6. LEVOID [Suspect]
     Indication: THYROID DISORDER
     Dosage: 1 DF (TABLET), UNK
     Route: 048
     Dates: start: 2010
  7. ASPIRINA PREVENT [Concomitant]
     Indication: BLOOD DISORDER
     Dosage: 1 DF(TABLET), DAILY
     Route: 048
     Dates: start: 2007

REACTIONS (6)
  - Cerebrovascular accident [Recovered/Resolved]
  - Pneumonia [Recovered/Resolved]
  - Abnormal behaviour [Not Recovered/Not Resolved]
  - Drug intolerance [Unknown]
  - Fall [Recovered/Resolved]
  - Therapeutic response unexpected [Unknown]
